FAERS Safety Report 11586903 (Version 1)
Quarter: 2015Q3

REPORT INFORMATION
  Report Type: Spontaneous
  Country: US (occurrence: US)
  Receive Date: 20150916
  Receipt Date: 20150916
  Transmission Date: 20151125
  Serious: No
  Sender: FDA-Public Use
  Company Number: US-ELI_LILLY_AND_COMPANY-US200802004401

PATIENT
  Age: 54 Year
  Sex: Male

DRUGS (3)
  1. FORTEO [Suspect]
     Active Substance: TERIPARATIDE
     Dosage: 2 D/F, DAILY (1/D)
     Dates: start: 20080119
  2. CALCIUM [Concomitant]
     Active Substance: CALCIUM
     Dosage: UP TO 28 PILLS PER DAY
  3. FORTEO [Suspect]
     Active Substance: TERIPARATIDE
     Indication: BLOOD CALCIUM
     Dosage: 1 D/F, DAILY (1/D)
     Dates: start: 200711, end: 20080118

REACTIONS (3)
  - Prescribed overdose [Unknown]
  - Asthenia [Recovering/Resolving]
  - Blood calcium abnormal [Recovering/Resolving]

NARRATIVE: CASE EVENT DATE: 200712
